FAERS Safety Report 5398271-0 (Version None)
Quarter: 2007Q3

REPORT INFORMATION
  Report Type: 
  Country: None (occurrence: None)
  Receive Date: 20070726
  Receipt Date: 20070716
  Transmission Date: 20080115
  Serious: Yes (Other)
  Sender: FDA-Public Use
  Company Number: DE-PFIZER INC-2007060022

PATIENT
  Sex: Female

DRUGS (2)
  1. ATARAX [Suspect]
     Dosage: DAILY DOSE:450MG
     Route: 048
     Dates: start: 20070716, end: 20070716
  2. SERTRALINE [Suspect]
     Dosage: DAILY DOSE:500MG
     Route: 048
     Dates: start: 20070716, end: 20070716

REACTIONS (4)
  - FATIGUE [None]
  - GASTROINTESTINAL SOUNDS ABNORMAL [None]
  - INTENTIONAL OVERDOSE [None]
  - SUICIDE ATTEMPT [None]
